FAERS Safety Report 11569390 (Version 1)
Quarter: 2015Q3

REPORT INFORMATION
  Report Type: Spontaneous
  Country: US (occurrence: US)
  Receive Date: 20150929
  Receipt Date: 20150929
  Transmission Date: 20151125
  Serious: No
  Sender: FDA-Public Use
  Company Number: US-DRREDDYS-USA/USA/15/0046100

PATIENT
  Age: 1 Year
  Sex: Female
  Weight: 9.9 kg

DRUGS (2)
  1. AMOXICILLIN W/CLAVULANATE POTASSIUM 250 MG/5 ML FOR ORAL SUSPENSION [Suspect]
     Active Substance: AMOXICILLIN\CLAVULANATE POTASSIUM
     Indication: VIRAL INFECTION
     Route: 048
     Dates: start: 20150210
  2. AMOXICILLIN W/CLAVULANATE POTASSIUM 250 MG/5 ML FOR ORAL SUSPENSION [Suspect]
     Active Substance: AMOXICILLIN\CLAVULANATE POTASSIUM
     Indication: COUGH

REACTIONS (4)
  - Irritability [Recovering/Resolving]
  - Diarrhoea [Recovered/Resolved]
  - Drug ineffective [Unknown]
  - Product quality issue [Unknown]

NARRATIVE: CASE EVENT DATE: 20150211
